FAERS Safety Report 9641976 (Version 1)
Quarter: 2013Q4

REPORT INFORMATION
  Report Type: Spontaneous
  Country: JP (occurrence: None)
  Receive Date: 20131022
  Receipt Date: 20131022
  Transmission Date: 20140711
  Serious: Yes (Other)
  Sender: FDA-Public Use
  Company Number: 2013-003221

PATIENT
  Age: 89 Year
  Sex: Female

DRUGS (1)
  1. BENET [Suspect]
     Route: 048

REACTIONS (5)
  - Femur fracture [None]
  - Femoral neck fracture [None]
  - Fracture delayed union [None]
  - Arthralgia [None]
  - Low turnover osteopathy [None]
